FAERS Safety Report 7799174-4 (Version None)
Quarter: 2011Q4

REPORT INFORMATION
  Report Type: 
  Country: None (occurrence: None)
  Receive Date: 20111006
  Receipt Date: 20110930
  Transmission Date: 20120403
  Serious: No
  Sender: FDA-Public Use
  Company Number: US-TYCO HEALTHCARE/MALLINCKRODT-T201101964

PATIENT
  Age: 38 Year
  Sex: Female

DRUGS (2)
  1. EXALGO [Suspect]
     Dosage: 24 MG QD
     Dates: start: 20110825, end: 20110825
  2. EXALGO [Suspect]
     Dosage: 12 MG, QD
     Dates: end: 20110824

REACTIONS (1)
  - INAPPROPRIATE SCHEDULE OF DRUG ADMINISTRATION [None]
